FAERS Safety Report 10387006 (Version 2)
Quarter: 2014Q3

REPORT INFORMATION
  Report Type: Spontaneous
  Country: DE (occurrence: DE)
  Receive Date: 20140815
  Receipt Date: 20140909
  Transmission Date: 20150326
  Serious: Yes (Disabling, Other)
  Sender: FDA-Public Use
  Company Number: DE-MYLANLABS-2014M1000696

PATIENT

DRUGS (3)
  1. LAMOTRIGINE. [Suspect]
     Active Substance: LAMOTRIGINE
     Indication: EPILEPSY
     Dosage: 100 MG, BID (100MG MORNING AND EVENING)
     Route: 048
     Dates: end: 20140622
  2. LAMOTRIGINE. [Suspect]
     Active Substance: LAMOTRIGINE
     Dosage: 100 MG IN THE MORNING AND 150 MG IN THE EVENING.
     Dates: start: 20140623
  3. SAYANA [Concomitant]
     Active Substance: MEDROXYPROGESTERONE
     Indication: CONTRACEPTION
     Route: 030

REACTIONS (4)
  - Dermatitis acneiform [Not Recovered/Not Resolved]
  - Tremor [Unknown]
  - Discomfort [Unknown]
  - Fatigue [Unknown]
